FAERS Safety Report 4288553-8 (Version None)
Quarter: 2004Q1

REPORT INFORMATION
  Report Type: 
  Country: None (occurrence: None)
  Receive Date: 20040205
  Receipt Date: 20040120
  Transmission Date: 20041129
  Serious: Yes (Death, Hospitalization)
  Sender: FDA-Public Use
  Company Number: 20040100028

PATIENT
  Age: 75 Year
  Sex: Male
  Weight: 102.2 kg

DRUGS (15)
  1. HEPARIN SODIUM [Suspect]
     Dates: start: 20031001, end: 20031001
  2. VALSARTAN +/-HCTZ [Concomitant]
  3. AMLODIPINE +/-HCTZ [Concomitant]
  4. PROPOXYPHENE HCL [Concomitant]
  5. BISACODYL [Concomitant]
  6. DANAZOL [Concomitant]
  7. ALLOPURINOL [Concomitant]
  8. DOCUSATE [Concomitant]
  9. FELODIPINE [Concomitant]
  10. ACETAMINOPHEN [Concomitant]
  11. OXYMETAZOLINE [Concomitant]
  12. PSYLLIUM [Concomitant]
  13. SENNOSIDES (SENNOSIDE A+B) [Concomitant]
  14. EPOETIN ALFA [Concomitant]
  15. INSULIN [Concomitant]

REACTIONS (26)
  - ADRENAL INSUFFICIENCY [None]
  - ASTHENIA [None]
  - CHILLS [None]
  - DEEP VEIN THROMBOSIS [None]
  - DISSEMINATED INTRAVASCULAR COAGULATION [None]
  - FLUID INTAKE REDUCED [None]
  - GENERAL PHYSICAL HEALTH DETERIORATION [None]
  - GRAND MAL CONVULSION [None]
  - HAEMOGLOBIN DECREASED [None]
  - HEPARIN-INDUCED THROMBOCYTOPENIA [None]
  - HYPERHIDROSIS [None]
  - HYPERKALAEMIA [None]
  - HYPOTENSION [None]
  - LUNG CONSOLIDATION [None]
  - METABOLIC ACIDOSIS [None]
  - MYELODYSPLASTIC SYNDROME [None]
  - PNEUMONIA [None]
  - PNEUMONIA ASPIRATION [None]
  - PO2 DECREASED [None]
  - PRODUCTIVE COUGH [None]
  - PYREXIA [None]
  - RENAL FAILURE ACUTE [None]
  - RESPIRATORY FAILURE [None]
  - SEPSIS [None]
  - TACHYPNOEA [None]
  - TRANSFUSION REACTION [None]
